FAERS Safety Report 6518177-0 (Version None)
Quarter: 2009Q4

REPORT INFORMATION
  Report Type: 
  Country: None (occurrence: None)
  Receive Date: 20091223
  Receipt Date: 20091223
  Transmission Date: 20100525
  Serious: No
  Sender: FDA-Public Use
  Company Number: None

PATIENT
  Age: 60 Year
  Sex: Female
  Weight: 66.4 kg

DRUGS (2)
  1. VORINOSTAT 100MG CAPSULE MERCK [Suspect]
     Indication: LUNG NEOPLASM MALIGNANT
     Dosage: 400 MG DAYS 1-14 PO
     Route: 048
     Dates: start: 20091124, end: 20091129
  2. BORTEZOMIB [Suspect]
     Indication: LUNG NEOPLASM MALIGNANT
     Dosage: 1.3 MG/M2 -2.2MG- DAYS 1,4,8 AND 11 IV BOLUS
     Route: 040
     Dates: start: 20091124, end: 20091127

REACTIONS (8)
  - DISEASE PROGRESSION [None]
  - DIZZINESS [None]
  - DYSPNOEA [None]
  - FAILURE TO THRIVE [None]
  - FATIGUE [None]
  - HYPONATRAEMIA [None]
  - HYPOXIA [None]
  - SYNCOPE [None]
